FAERS Safety Report 8931130 (Version 2)
Quarter: 2012Q4

REPORT INFORMATION
  Report Type: 
  Country: US (occurrence: US)
  Receive Date: 20121121
  Receipt Date: 20121212
  Transmission Date: 20130627
  Serious: Yes (Death)
  Sender: FDA-Public Use
  Company Number: US-ASTELLAS-1093316

PATIENT
  Sex: Male
  Weight: 73.2 kg

DRUGS (2)
  1. TARCEVA [Suspect]
     Indication: METASTASES TO LUNG
     Route: 048
     Dates: start: 20070827, end: 20070902
  2. CANCIDAS [Concomitant]
     Route: 065
     Dates: start: 20070830

REACTIONS (1)
  - Death [Fatal]
